FAERS Safety Report 26201267 (Version 1)
Quarter: 2025Q4

REPORT INFORMATION
  Report Type: Report from Study
  Country: CO (occurrence: CO)
  Receive Date: 20251226
  Receipt Date: 20251226
  Transmission Date: 20260118
  Serious: Yes (Hospitalization, Other)
  Sender: NOVARTIS
  Company Number: CO-002147023-NVSC2025CO084835

PATIENT
  Sex: Female
  Weight: 64 kg

DRUGS (5)
  1. KISQALI [Suspect]
     Active Substance: RIBOCICLIB SUCCINATE
     Indication: Hormone receptor positive HER2 negative breast cancer
     Dosage: 1 DOSAGE FORM, TID (600 MG, QD (3 TABLETS DAILY: IN THE MORNING, AT MIDDAY AND AT NIGHT)
     Route: 048
     Dates: start: 2022
  2. KISQALI [Suspect]
     Active Substance: RIBOCICLIB SUCCINATE
     Indication: Breast cancer metastatic
     Dosage: UNK
     Route: 065
     Dates: start: 20250625
  3. KISQALI [Suspect]
     Active Substance: RIBOCICLIB SUCCINATE
     Dosage: 600 MG, QD (ENTERIC TABLET)
     Route: 048
  4. TRAMADOL [Concomitant]
     Active Substance: TRAMADOL
     Indication: Product used for unknown indication
     Dosage: 37.5 MG, BID (TABLET)
     Route: 065
  5. IPRATROPIUM BROMIDE [Concomitant]
     Active Substance: IPRATROPIUM BROMIDE
     Indication: Product used for unknown indication
     Dosage: UNK, BID
     Route: 055

REACTIONS (12)
  - Cough [Unknown]
  - Suffocation feeling [Unknown]
  - Tissue injury [Unknown]
  - Abdominal discomfort [Recovered/Resolved]
  - Burning sensation [Unknown]
  - Pain [Unknown]
  - Thyroid disorder [Unknown]
  - Pharyngeal mass [Unknown]
  - Laryngeal discomfort [Unknown]
  - Body height decreased [Unknown]
  - Alopecia [Unknown]
  - Inappropriate schedule of product administration [Unknown]

NARRATIVE: CASE EVENT DATE: 20230101
